FAERS Safety Report 10731568 (Version 1)
Quarter: 2015Q1

REPORT INFORMATION
  Report Type: Spontaneous
  Country: FR (occurrence: FR)
  Receive Date: 20150123
  Receipt Date: 20150123
  Transmission Date: 20150721
  Serious: Yes (Hospitalization)
  Sender: FDA-Public Use
  Company Number: FR-CIPLA LTD.-2015FR00451

PATIENT

DRUGS (14)
  1. IRINOTECAN [Suspect]
     Active Substance: IRINOTECAN
     Indication: ADENOCARCINOMA PANCREAS
  2. 5 FLUOROURACIL [Suspect]
     Active Substance: FLUOROURACIL
     Indication: HEPATIC CANCER
  3. STEROIDS [Concomitant]
     Active Substance: UNSPECIFIED INGREDIENT
     Indication: INTESTINAL OBSTRUCTION
  4. GRANULOCYTE COLONY STIMULATING FACTOR [Concomitant]
     Active Substance: GRANULOCYTE COLONY-STIMULATING FACTOR NOS
     Indication: PROPHYLAXIS
  5. TRIMETHOPRIM-SULFAMETHOXAZOLE [Concomitant]
     Active Substance: SULFAMETHOXAZOLE\TRIMETHOPRIM
     Dosage: 100 TO 20 MG/KG PER DAY
  6. OXALIPLATIN. [Suspect]
     Active Substance: OXALIPLATIN
     Indication: ADENOCARCINOMA PANCREAS
  7. OXALIPLATIN. [Suspect]
     Active Substance: OXALIPLATIN
     Indication: HEPATIC CANCER
  8. IRINOTECAN [Suspect]
     Active Substance: IRINOTECAN
     Indication: ASCITES
  9. IRINOTECAN [Suspect]
     Active Substance: IRINOTECAN
     Indication: HEPATIC CANCER
  10. VORICONAZOLE. [Concomitant]
     Active Substance: VORICONAZOLE
     Dosage: 200 MG TWICE A DAY ON THE FOLLOWING DAYS
  11. OXALIPLATIN. [Suspect]
     Active Substance: OXALIPLATIN
     Indication: ASCITES
  12. 5 FLUOROURACIL [Suspect]
     Active Substance: FLUOROURACIL
     Indication: ADENOCARCINOMA PANCREAS
  13. 5 FLUOROURACIL [Suspect]
     Active Substance: FLUOROURACIL
     Indication: ASCITES
  14. VORICONAZOLE. [Concomitant]
     Active Substance: VORICONAZOLE
     Dosage: 400MG TWICE A DAY FOR 1 DAY

REACTIONS (3)
  - Pneumocystis jirovecii pneumonia [Recovered/Resolved]
  - Febrile neutropenia [Unknown]
  - Aspergillus infection [Recovered/Resolved]
